FAERS Safety Report 15360410 (Version 4)
Quarter: 2019Q1

REPORT INFORMATION
  Report Type: Spontaneous
  Country: US (occurrence: US)
  Receive Date: 20180907
  Receipt Date: 20190326
  Transmission Date: 20190417
  Serious: No
  Sender: FDA-Public Use
  Company Number: US-PFIZER INC-2018360819

PATIENT
  Age: 66 Year
  Sex: Female
  Weight: 82 kg

DRUGS (7)
  1. LETROZOLE. [Concomitant]
     Active Substance: LETROZOLE
     Indication: BREAST CANCER STAGE IV
     Dosage: 2.5 MG, 1X/DAY (ONE TABLET)
     Route: 048
     Dates: start: 201805
  2. HYDROCHLOROTHIAZIDE. [Concomitant]
     Active Substance: HYDROCHLOROTHIAZIDE
     Indication: LIMB DISCOMFORT
     Dosage: 12.5 MG, DAILY (ONE TABLET )
     Route: 048
     Dates: start: 2009
  3. IBRANCE [Suspect]
     Active Substance: PALBOCICLIB
     Indication: BREAST CANCER METASTATIC
     Dosage: 125 MG, CYCLIC (ONE CAPSULE BY MOUTH DAILY OF 3 WEEKS ON, ONE WEEK OFF.)
     Route: 048
     Dates: start: 201805, end: 20181231
  4. LEVOTHYROXINE. [Concomitant]
     Active Substance: LEVOTHYROXINE
     Indication: THYROID DISORDER
     Dosage: 200 UG, 1X/DAY (ONE TABLET)
     Route: 048
     Dates: start: 200812
  5. TRAMADOL. [Concomitant]
     Active Substance: TRAMADOL
     Indication: PAIN
     Dosage: 50 MG, AS NEEDED(ONE TABLET TWICE A DAY)
  6. IBUPROFEN. [Concomitant]
     Active Substance: IBUPROFEN
     Indication: PARAESTHESIA
     Dosage: UNK
  7. METOPROLOL. [Concomitant]
     Active Substance: METOPROLOL
     Indication: BLOOD PRESSURE ABNORMAL
     Dosage: 100 MG, DAILY (ONE TABLET)
     Route: 048
     Dates: start: 200905

REACTIONS (2)
  - White blood cell count decreased [Recovering/Resolving]
  - Weight decreased [Unknown]

NARRATIVE: CASE EVENT DATE: 2018
